FAERS Safety Report 6413893-3 (Version None)
Quarter: 2009Q4

REPORT INFORMATION
  Report Type: 
  Country: None (occurrence: None)
  Receive Date: 20091026
  Receipt Date: 20091016
  Transmission Date: 20100525
  Serious: Yes (Death, Hospitalization)
  Sender: FDA-Public Use
  Company Number: B0561412A

PATIENT
  Sex: Female

DRUGS (4)
  1. LAMICTAL [Suspect]
     Indication: DEPRESSION
     Dosage: 100MG PER DAY
     Route: 048
     Dates: start: 20090204, end: 20090211
  2. VALERIAN [Suspect]
     Indication: INSOMNIA
     Route: 065
     Dates: start: 20090201
  3. SEREUPIN [Concomitant]
     Indication: DEPRESSION
     Dosage: 20MG PER DAY
     Route: 048
     Dates: start: 20081201
  4. XANAX [Concomitant]
     Indication: DEPRESSION
     Route: 048
     Dates: start: 20081201

REACTIONS (15)
  - ACUTE HEPATIC FAILURE [None]
  - ACUTE RESPIRATORY DISTRESS SYNDROME [None]
  - ANURIA [None]
  - COMA [None]
  - DISSEMINATED INTRAVASCULAR COAGULATION [None]
  - HAEMODYNAMIC INSTABILITY [None]
  - HEPATIC NECROSIS [None]
  - HEPATIC STEATOSIS [None]
  - INSOMNIA [None]
  - NECROSIS ISCHAEMIC [None]
  - NEUROLOGICAL DECOMPENSATION [None]
  - RASH ERYTHEMATOUS [None]
  - RENAL FAILURE ACUTE [None]
  - RESPIRATORY FAILURE [None]
  - SOMNOLENCE [None]
